FAERS Safety Report 4484953-1 (Version None)
Quarter: 2004Q3

REPORT INFORMATION
  Report Type: 
  Country: None (occurrence: None)
  Receive Date: 20040921
  Receipt Date: 20040603
  Transmission Date: 20050211
  Serious: Yes (Hospitalization)
  Sender: FDA-Public Use
  Company Number: 163-20785-03010128

PATIENT
  Age: 54 Year
  Sex: Female

DRUGS (12)
  1. THALOMID [Suspect]
     Indication: MULTIPLE MYELOMA
     Dosage: 400 MG, QD, ORAL;   300 MG, QD, ORAL
     Route: 048
     Dates: start: 19990901, end: 20000101
  2. THALOMID [Suspect]
     Indication: MULTIPLE MYELOMA
     Dosage: 400 MG, QD, ORAL;   300 MG, QD, ORAL
     Route: 048
     Dates: start: 20010101
  3. OXYCONTIN [Suspect]
     Dosage: 100 MG, Q8H, ORAL
     Route: 048
  4. PROCRIT [Concomitant]
  5. EFFEXOR [Concomitant]
  6. ZOMETA [Concomitant]
  7. NEURONTIN [Concomitant]
  8. CELEXA [Concomitant]
  9. PREMARIN [Concomitant]
  10. LASIX [Concomitant]
  11. FOLIC ACID [Concomitant]
  12. PROVERA [Concomitant]

REACTIONS (7)
  - ALOPECIA [None]
  - CONSTIPATION [None]
  - NAIL BED INFECTION [None]
  - RENAL FAILURE [None]
  - SINUSITIS [None]
  - SOMNOLENCE [None]
  - UPPER RESPIRATORY TRACT INFECTION [None]
